FAERS Safety Report 6050656-5 (Version None)
Quarter: 2009Q1

REPORT INFORMATION
  Report Type: 
  Country: None (occurrence: None)
  Receive Date: 20090121
  Receipt Date: 20080529
  Transmission Date: 20090719
  Serious: Yes (Hospitalization, Other)
  Sender: FDA-Public Use
  Company Number: 2008SP010246

PATIENT
  Age: 5 Year
  Sex: Male

DRUGS (1)
  1. DESLORATADINE [Suspect]
     Indication: LARYNGITIS
     Dosage: 2.5 MG, QD; PO
     Route: 048

REACTIONS (6)
  - ABNORMAL SLEEP-RELATED EVENT [None]
  - AGITATION [None]
  - FATIGUE [None]
  - MOVEMENT DISORDER [None]
  - SLEEP DISORDER [None]
  - UNRESPONSIVE TO STIMULI [None]
